FAERS Safety Report 8666045 (Version 4)
Quarter: 2013Q2

REPORT INFORMATION
  Report Type: Spontaneous
  Country: US (occurrence: None)
  Receive Date: 20120619
  Receipt Date: 20130416
  Transmission Date: 20140414
  Serious: Yes (Other)
  Sender: FDA-Public Use
  Company Number: 2012032625

PATIENT
  Age: 61 Year
  Sex: Female
  Weight: 79.83 kg

DRUGS (17)
  1. HIZENTRA [Suspect]
     Indication: IMMUNODEFICIENCY COMMON VARIABLE
     Dosage: (10 G 1X/WEEK, 2 GM VIA THREE SITES SUBCUTANEOUS),
     Route: 058
     Dates: start: 20120528, end: 20120528
  2. CLARINEX (NARINE) [Concomitant]
  3. FLOVENT HFA [Concomitant]
  4. RHINOCORT [Concomitant]
  5. VITAMIN B12 [Concomitant]
  6. VITAMIN D3 (COLECALCIFEROL) [Concomitant]
  7. CINNAMON (CINNAMOMUM VERUM) [Concomitant]
  8. VYTORIN [Concomitant]
  9. PREMARIN [Concomitant]
  10. PROZAC [Concomitant]
  11. OMEPRAZOLE [Concomitant]
  12. CALCIUM CARBONATE [Concomitant]
  13. ACETAMINOPHEN (PARACETAMOL) [Concomitant]
  14. DILTIAZEM [Concomitant]
  15. METFORMIN HYDROCHLORIDE [Concomitant]
  16. SANCTURA [Concomitant]
  17. TRIAMTERENE HCTZ (DYAZIDE) [Concomitant]

REACTIONS (3)
  - RENAL IMPAIRMENT [None]
  - Renal tubular necrosis [None]
  - Type III immune complex mediated reaction [None]
